FAERS Safety Report 5955327-9 (Version None)
Quarter: 2008Q4

REPORT INFORMATION
  Report Type: 
  Country: None (occurrence: None)
  Receive Date: 20081112
  Receipt Date: 20081104
  Transmission Date: 20090506
  Serious: Yes (Hospitalization)
  Sender: FDA-Public Use
  Company Number: 6046882

PATIENT
  Age: 58 Year
  Sex: Female

DRUGS (8)
  1. BISOPROLOL FUMARATE [Suspect]
     Indication: DRUG USE FOR UNKNOWN INDICATION
     Dosage: 300 MG, 1 D              ORAL
     Route: 048
     Dates: start: 20080902, end: 20081003
  2. ALLOPURINOL [Suspect]
     Indication: DRUG USE FOR UNKNOWN INDICATION
     Dosage: (300 MG, 1 D)
     Dates: end: 20080930
  3. VANCOMYCIN [Suspect]
     Indication: DRUG USE FOR UNKNOWN INDICATION
     Dosage: INTRAVENOUS
     Route: 042
     Dates: start: 20080825, end: 20080925
  4. DOXYCYCLINE [Suspect]
     Indication: DRUG USE FOR UNKNOWN INDICATION
     Dosage: ORAL
     Route: 048
     Dates: start: 20080825, end: 20080923
  5. LEVOTHYROXINE SODIUM [Concomitant]
  6. DEROXAT (TABLET) (PAROXETINE HYDROCHLORIDE) [Concomitant]
  7. ADANCOR (20 MG, TABLET) (NICORANDIL) [Concomitant]
  8. TOPALGIC LP (100 MG, TABLET) (TRAMADOL HYDROCHLORIDE) [Concomitant]

REACTIONS (7)
  - C-REACTIVE PROTEIN INCREASED [None]
  - DERMATITIS EXFOLIATIVE [None]
  - DRUG RASH WITH EOSINOPHILIA AND SYSTEMIC SYMPTOMS [None]
  - ERYTHEMA [None]
  - RASH PUSTULAR [None]
  - RENAL FAILURE [None]
  - WHITE BLOOD CELL COUNT INCREASED [None]
